FAERS Safety Report 5958010-9 (Version None)
Quarter: 2008Q4

REPORT INFORMATION
  Report Type: 
  Country: None (occurrence: None)
  Receive Date: 20081119
  Receipt Date: 20081110
  Transmission Date: 20090506
  Serious: Yes (Hospitalization)
  Sender: FDA-Public Use
  Company Number: PHHY2008DE27886

PATIENT
  Sex: Male

DRUGS (9)
  1. LEPONEX [Suspect]
     Dosage: 400 MG / DAY
     Route: 048
     Dates: start: 20040101, end: 20060101
  2. LEPONEX [Suspect]
     Dosage: 700 MG / DAY
     Route: 048
     Dates: start: 20060101, end: 20080201
  3. LEPONEX [Suspect]
     Dosage: 600 MG / DAY
     Route: 048
     Dates: start: 20080201, end: 20080626
  4. LEPONEX [Suspect]
     Dosage: UP TO 600 MG / DAY
     Route: 048
     Dates: start: 20080704
  5. TRILEPTAL / GP 47680 / TRI 476B [Suspect]
     Dosage: 900 MG / DAY
     Route: 048
     Dates: start: 20040101, end: 20070101
  6. TRILEPTAL / GP 47680 / TRI 476B [Suspect]
     Dosage: 1200 MG / DAY
     Route: 048
     Dates: start: 20070101, end: 20080626
  7. DIPIPERON [Suspect]
     Dosage: 80 MG / DAY
     Route: 048
     Dates: start: 20070101, end: 20080626
  8. RIVOTRIL [Concomitant]
  9. VALPROIC ACID [Concomitant]

REACTIONS (12)
  - BLOOD CREATINE PHOSPHOKINASE INCREASED [None]
  - C-REACTIVE PROTEIN INCREASED [None]
  - COMA [None]
  - CONVULSIVE THRESHOLD LOWERED [None]
  - ELECTROENCEPHALOGRAM ABNORMAL [None]
  - ENURESIS [None]
  - GRAND MAL CONVULSION [None]
  - HYPONATRAEMIA [None]
  - RESTLESSNESS [None]
  - TONGUE BITING [None]
  - UNRESPONSIVE TO STIMULI [None]
  - VOMITING [None]
